FAERS Safety Report 18575607 (Version 9)
Quarter: 2021Q3

REPORT INFORMATION
  Report Type: Report from Study
  Country: CO (occurrence: CO)
  Receive Date: 20201203
  Receipt Date: 20210717
  Transmission Date: 20211014
  Serious: No
  Sender: FDA-Public Use
  Company Number: CO-TAKEDA-CO202005272

PATIENT
  Age: 55 Year
  Sex: Female
  Weight: 38 kg

DRUGS (10)
  1. ICATIBANT [Suspect]
     Active Substance: ICATIBANT ACETATE
     Indication: HEREDITARY ANGIOEDEMA
     Dosage: 30MG/3 ML, Q6HR, NOT MORE THAN 3 SYRINGE/24HR
     Route: 058
     Dates: start: 20171025
  2. ICATIBANT [Suspect]
     Active Substance: ICATIBANT ACETATE
     Indication: HEREDITARY ANGIOEDEMA
     Dosage: 30MG/3 ML, Q6HR, NOT MORE THAN 3 SYRINGE/24HR
     Route: 058
     Dates: start: 20171025
  3. ICATIBANT [Suspect]
     Active Substance: ICATIBANT ACETATE
     Dosage: 30 MILLIGRAM, AS REQD
     Route: 058
     Dates: start: 20200203, end: 20200204
  4. ICATIBANT [Suspect]
     Active Substance: ICATIBANT ACETATE
     Dosage: 30 MILLIGRAM, AS REQD
     Route: 058
     Dates: start: 20200315, end: 20200315
  5. ICATIBANT [Suspect]
     Active Substance: ICATIBANT ACETATE
     Dosage: 30 MILLIGRAM, AS REQD
     Route: 058
     Dates: start: 20200321, end: 20200321
  6. ICATIBANT [Suspect]
     Active Substance: ICATIBANT ACETATE
     Dosage: 30 MILLIGRAM/3 ML, AS REQD
     Route: 058
     Dates: start: 20200920, end: 20200920
  7. ICATIBANT [Suspect]
     Active Substance: ICATIBANT ACETATE
     Dosage: 30 MILLIGRAM, AS REQD
     Route: 058
     Dates: start: 20200203, end: 20200204
  8. ICATIBANT [Suspect]
     Active Substance: ICATIBANT ACETATE
     Dosage: 30 MILLIGRAM, AS REQD
     Route: 058
     Dates: start: 20200315, end: 20200315
  9. ICATIBANT [Suspect]
     Active Substance: ICATIBANT ACETATE
     Dosage: 30 MILLIGRAM, AS REQD
     Route: 058
     Dates: start: 20200321, end: 20200321
  10. ICATIBANT [Suspect]
     Active Substance: ICATIBANT ACETATE
     Dosage: 30 MILLIGRAM/3 ML, AS REQD
     Route: 058
     Dates: start: 20200920, end: 20200920

REACTIONS (2)
  - No adverse event [Unknown]
  - Product availability issue [Recovered/Resolved]

NARRATIVE: CASE EVENT DATE: 20200223
